FAERS Safety Report 19843916 (Version 3)
Quarter: 2022Q1

REPORT INFORMATION
  Report Type: Report from Study
  Country: US (occurrence: US)
  Receive Date: 20210917
  Receipt Date: 20220315
  Transmission Date: 20220423
  Serious: Yes (Hospitalization, Other)
  Sender: FDA-Public Use
  Company Number: US-ABBVIE-21K-163-4080094-00

PATIENT
  Sex: Female

DRUGS (3)
  1. SKYRIZI [Suspect]
     Active Substance: RISANKIZUMAB-RZAA
     Indication: Psoriasis
     Route: 058
  2. COVID-19 VACCINE [Concomitant]
     Indication: COVID-19 immunisation
     Dosage: JOHNSON + JOHNSON
     Route: 030
     Dates: start: 202107, end: 202107
  3. COVID-19 VACCINE [Concomitant]
     Dosage: COVID BOOSTER VACCINE
     Route: 030
     Dates: start: 20220111, end: 20220111

REACTIONS (14)
  - Spinal fracture [Unknown]
  - Bone contusion [Unknown]
  - Fall [Unknown]
  - Rib fracture [Recovered/Resolved]
  - Mobility decreased [Unknown]
  - Metabolic disorder [Unknown]
  - Paraesthesia [Unknown]
  - Hypoaesthesia [Unknown]
  - Tremor [Unknown]
  - Urinary incontinence [Unknown]
  - Anal incontinence [Unknown]
  - Rotator cuff syndrome [Unknown]
  - Drug ineffective [Unknown]
  - Psoriasis [Unknown]

NARRATIVE: CASE EVENT DATE: 20210101
